FAERS Safety Report 11913222 (Version 4)
Quarter: 2016Q2

REPORT INFORMATION
  Report Type: Report from Study
  Country: JP (occurrence: JP)
  Receive Date: 20160113
  Receipt Date: 20160413
  Transmission Date: 20160815
  Serious: Yes (Hospitalization)
  Sender: FDA-Public Use
  Company Number: JP-ASTELLAS-2015JP025702AA

PATIENT
  Age: 53 Year
  Sex: Male
  Weight: 60 kg

DRUGS (19)
  1. PROGRAF [Suspect]
     Active Substance: TACROLIMUS\TACROLIMUS ANHYDROUS
     Indication: PROPHYLAXIS AGAINST GRAFT VERSUS HOST DISEASE
     Dosage: 4.6 MG, ONCE DAILY
     Route: 048
  2. MEDROL [Suspect]
     Active Substance: METHYLPREDNISOLONE
     Indication: ACUTE GRAFT VERSUS HOST DISEASE IN SKIN
     Route: 048
     Dates: start: 20151116
  3. FOSCAVIR [Concomitant]
     Active Substance: FOSCARNET SODIUM
     Indication: CYTOMEGALOVIRUS VIRAEMIA
     Dosage: 22.08 MG, ONCE DAILY
     Route: 041
     Dates: start: 20151223, end: 20151225
  4. ASP0113 [Suspect]
     Active Substance: INVESTIGATIONAL PRODUCT
     Indication: ANTIVIRAL PROPHYLAXIS
     Route: 030
     Dates: start: 20151029, end: 20151029
  5. PROGRAF [Suspect]
     Active Substance: TACROLIMUS\TACROLIMUS ANHYDROUS
     Dosage: 3.8 MG, ONCE DAILY (THE DOSE WAS ADJUSTED BASED ON THE TROUGH LEVEL)
     Route: 048
  6. FOSCAVIR [Concomitant]
     Active Substance: FOSCARNET SODIUM
     Dosage: 22.08 MG, ONCE DAILY
     Route: 041
     Dates: start: 20151231, end: 20160103
  7. FOSCAVIR [Concomitant]
     Active Substance: FOSCARNET SODIUM
     Dosage: UNKNOWN DOSE
     Route: 041
     Dates: start: 20160212, end: 20160218
  8. ASP0113 [Suspect]
     Active Substance: INVESTIGATIONAL PRODUCT
     Route: 030
     Dates: start: 20151209, end: 20151209
  9. FOSCAVIR [Concomitant]
     Active Substance: FOSCARNET SODIUM
     Dosage: UNKNOWN DOSE
     Route: 041
     Dates: start: 20160124, end: 20160205
  10. ITRIZOLE [Concomitant]
     Active Substance: ITRACONAZOLE
     Indication: INFECTION PROPHYLAXIS
     Route: 048
     Dates: start: 20151127
  11. FOSCAVIR [Concomitant]
     Active Substance: FOSCARNET SODIUM
     Dosage: 44.16 MG, ONCE DAILY
     Route: 041
     Dates: start: 20151226, end: 20151230
  12. MEDROL [Suspect]
     Active Substance: METHYLPREDNISOLONE
     Route: 048
  13. MIYA-BM [Concomitant]
     Active Substance: CLOSTRIDIUM BUTYRICUM SPORES STRAIN M-55
     Indication: BOWEL MOVEMENT IRREGULARITY
     Dosage: 3 PACKETS, ONCE DAILY
     Route: 048
     Dates: start: 20150928
  14. FOSCAVIR [Concomitant]
     Active Substance: FOSCARNET SODIUM
     Dosage: 15.36 MG, ONCE DAILY
     Route: 041
     Dates: start: 20160104, end: 20160105
  15. BAKTAR [Concomitant]
     Active Substance: SULFAMETHOXAZOLE\TRIMETHOPRIM
     Indication: INFECTION PROPHYLAXIS
     Route: 048
     Dates: start: 20151126
  16. PROGRAF [Suspect]
     Active Substance: TACROLIMUS\TACROLIMUS ANHYDROUS
     Indication: ACUTE GRAFT VERSUS HOST DISEASE IN SKIN
     Dosage: 0.8 MG, ONCE DAILY
     Route: 048
     Dates: start: 20151104
  17. VALIXA [Suspect]
     Active Substance: VALGANCICLOVIR
     Indication: CYTOMEGALOVIRUS VIRAEMIA
     Route: 048
     Dates: start: 20151211, end: 20151222
  18. URSO [Concomitant]
     Active Substance: URSODIOL
     Indication: PROPHYLAXIS
     Route: 048
     Dates: start: 20151029
  19. ACICLOVIR [Concomitant]
     Active Substance: ACYCLOVIR
     Indication: INFECTION PROPHYLAXIS
     Route: 048
     Dates: start: 20151029

REACTIONS (2)
  - Thrombocytopenia [Recovered/Resolved]
  - Cytomegalovirus viraemia [Recovered/Resolved]

NARRATIVE: CASE EVENT DATE: 20151222
